FAERS Safety Report 21091139 (Version 1)
Quarter: 2022Q3

REPORT INFORMATION
  Report Type: Spontaneous
  Country: US (occurrence: US)
  Receive Date: 20220716
  Receipt Date: 20220716
  Transmission Date: 20221026
  Serious: Yes (Hospitalization, Other)
  Sender: FDA-Public Use
  Company Number: US-UNITED THERAPEUTICS-UNT-2022-015293

PATIENT
  Age: 49 Year
  Sex: Female
  Weight: 68.027 kg

DRUGS (2)
  1. REMODULIN [Suspect]
     Active Substance: TREPROSTINIL
     Indication: Pulmonary arterial hypertension
     Dosage: UNK, CONTINUING
     Route: 058
     Dates: start: 20210219
  2. REMODULIN [Suspect]
     Active Substance: TREPROSTINIL
     Dosage: 0.0486 ?G/KG, CONTINUING
     Route: 058

REACTIONS (2)
  - Pericardial effusion [Unknown]
  - Malaise [Unknown]

NARRATIVE: CASE EVENT DATE: 20220708
